FAERS Safety Report 10347010 (Version 3)
Quarter: 2014Q3

REPORT INFORMATION
  Report Type: Spontaneous
  Country: GB (occurrence: GB)
  Receive Date: 20140729
  Receipt Date: 20140819
  Transmission Date: 20150326
  Serious: Yes (Death, Other)
  Sender: FDA-Public Use
  Company Number: PHFR2014GB005112

PATIENT
  Age: 35 Year
  Sex: Male

DRUGS (5)
  1. CLOZARIL [Suspect]
     Active Substance: CLOZAPINE
     Dosage: 400 MG,
     Route: 048
  2. CLOZARIL [Suspect]
     Active Substance: CLOZAPINE
     Dosage: 100 MG, QD
     Route: 048
  3. CLOZARIL [Suspect]
     Active Substance: CLOZAPINE
     Indication: SCHIZOPHRENIA
     Route: 048
     Dates: start: 20120914
  4. CLOZARIL [Suspect]
     Active Substance: CLOZAPINE
     Dosage: 25 MG, QD
     Route: 048
  5. CLOZARIL [Suspect]
     Active Substance: CLOZAPINE
     Dosage: 300 MG,
     Route: 048

REACTIONS (6)
  - Dehydration [Unknown]
  - White blood cell count increased [Recovered/Resolved]
  - Drug level increased [Unknown]
  - Tachycardia [Unknown]
  - Incorrect dosage administered [Unknown]
  - Completed suicide [Fatal]

NARRATIVE: CASE EVENT DATE: 20140707
